FAERS Safety Report 15679379 (Version 1)
Quarter: 2018Q4

REPORT INFORMATION
  Report Type: Spontaneous
  Country: HU (occurrence: HU)
  Receive Date: 20181203
  Receipt Date: 20181203
  Transmission Date: 20190205
  Serious: Yes (Death)
  Sender: FDA-Public Use
  Company Number: HU-ROCHE-2220940

PATIENT
  Age: 17 Year
  Sex: Male

DRUGS (7)
  1. DEXAMETHASONE. [Suspect]
     Active Substance: DEXAMETHASONE
     Indication: X-LINKED LYMPHOPROLIFERATIVE SYNDROME
     Route: 065
  2. METHYLPREDNISOLONE. [Concomitant]
     Active Substance: METHYLPREDNISOLONE
     Indication: INFECTIOUS MONONUCLEOSIS
  3. RITUXIMAB. [Suspect]
     Active Substance: RITUXIMAB
     Indication: X-LINKED LYMPHOPROLIFERATIVE SYNDROME
     Route: 065
  4. ETOPOSIDE. [Suspect]
     Active Substance: ETOPOSIDE
     Indication: X-LINKED LYMPHOPROLIFERATIVE SYNDROME
     Route: 065
  5. CICLOSPORIN [Suspect]
     Active Substance: CYCLOSPORINE
     Indication: X-LINKED LYMPHOPROLIFERATIVE SYNDROME
     Route: 065
  6. METHOTREXATE. [Suspect]
     Active Substance: METHOTREXATE
     Indication: X-LINKED LYMPHOPROLIFERATIVE SYNDROME
     Route: 065
  7. METHYLPREDNISOLONE. [Concomitant]
     Active Substance: METHYLPREDNISOLONE
     Indication: IMMUNE THROMBOCYTOPENIC PURPURA
     Route: 065

REACTIONS (9)
  - Hepatic necrosis [Fatal]
  - Haemorrhage [Fatal]
  - Product use in unapproved indication [Fatal]
  - Acute kidney injury [Fatal]
  - Splenomegaly [Fatal]
  - Lymphocytic infiltration [Fatal]
  - Pneumonia [Fatal]
  - Lymphadenopathy [Fatal]
  - Haemophagocytic lymphohistiocytosis [Fatal]
